FAERS Safety Report 20608963 (Version 1)
Quarter: 2022Q1

REPORT INFORMATION
  Report Type: Spontaneous
  Country: IL (occurrence: IL)
  Receive Date: 20220317
  Receipt Date: 20220317
  Transmission Date: 20220424
  Serious: Yes (Other)
  Sender: FDA-Public Use
  Company Number: IL-002147023-NVSC2022IL055923

PATIENT
  Age: 77 Year
  Sex: Male

DRUGS (1)
  1. LUCENTIS [Suspect]
     Active Substance: RANIBIZUMAB
     Indication: Neovascular age-related macular degeneration
     Dosage: 0.5 MG, QMO (3 MONTHLY INJECTIONS)
     Route: 065

REACTIONS (5)
  - Retinal oedema [Unknown]
  - Retinal thickening [Unknown]
  - Neovascular age-related macular degeneration [Unknown]
  - Condition aggravated [Unknown]
  - Off label use [Unknown]
